FAERS Safety Report 5696595-0 (Version None)
Quarter: 2008Q2

REPORT INFORMATION
  Report Type: 
  Country: None (occurrence: None)
  Receive Date: 20080404
  Receipt Date: 20080404
  Transmission Date: 20081010
  Serious: Yes (Hospitalization)
  Sender: FDA-Public Use
  Company Number: None

PATIENT
  Age: 53 Year
  Sex: Male

DRUGS (1)
  1. DOXYCYCLINE [Suspect]
     Indication: ROSACEA
     Dosage: 40 MG EVERY DAY PO
     Route: 048
     Dates: start: 20080107, end: 20080229

REACTIONS (4)
  - AMNESIA [None]
  - EXCORIATION [None]
  - HALLUCINATION [None]
  - MENTAL STATUS CHANGES [None]
